FAERS Safety Report 13696384 (Version 2)
Quarter: 2017Q3

REPORT INFORMATION
  Report Type: Spontaneous
  Country: US (occurrence: US)
  Receive Date: 20170628
  Receipt Date: 20170703
  Transmission Date: 20171127
  Serious: No
  Sender: FDA-Public Use
  Company Number: US-ASTRAZENECA-2017SE66303

PATIENT
  Age: 733 Month
  Sex: Female
  Weight: 110.2 kg

DRUGS (4)
  1. CEFDINIR. [Concomitant]
     Active Substance: CEFDINIR
  2. SYMBICORT [Suspect]
     Active Substance: BUDESONIDE\FORMOTEROL FUMARATE DIHYDRATE
     Indication: CARDIAC DISORDER
     Dosage: 160/4.5 MICROGRAMS, TWO PUFFS, TWO TIMES A DAY
     Route: 055
     Dates: start: 201511
  3. SYMBICORT [Suspect]
     Active Substance: BUDESONIDE\FORMOTEROL FUMARATE DIHYDRATE
     Indication: HYPERSENSITIVITY
     Dosage: 160/4.5 MICROGRAMS, TWO PUFFS, TWO TIMES A DAY
     Route: 055
     Dates: start: 201511
  4. SYMBICORT [Suspect]
     Active Substance: BUDESONIDE\FORMOTEROL FUMARATE DIHYDRATE
     Indication: IMPLANTABLE DEFIBRILLATOR INSERTION
     Dosage: 160/4.5 MICROGRAMS, TWO PUFFS, TWO TIMES A DAY
     Route: 055
     Dates: start: 201511

REACTIONS (4)
  - Product use in unapproved indication [Unknown]
  - Influenza [Unknown]
  - Off label use [Unknown]
  - Nasopharyngitis [Unknown]

NARRATIVE: CASE EVENT DATE: 201511
